FAERS Safety Report 24804995 (Version 2)
Quarter: 2025Q1

REPORT INFORMATION
  Report Type: Spontaneous
  Country: EE (occurrence: EE)
  Receive Date: 20250103
  Receipt Date: 20250122
  Transmission Date: 20250409
  Serious: No
  Sender: VERTEX
  Company Number: EE-VERTEX PHARMACEUTICALS-2025-000046

PATIENT
  Age: 7 Year
  Sex: Male

DRUGS (3)
  1. ELEXACAFTOR\IVACAFTOR\TEZACAFTOR [Suspect]
     Active Substance: ELEXACAFTOR\IVACAFTOR\TEZACAFTOR
     Indication: Cystic fibrosis
     Dosage: 37.5 MG IVACAFTOR/25 MG TEZACAFTOR/50 MG ELEXACAFTOR, 2 TABS IN AM
     Route: 048
     Dates: start: 20240702
  2. KALYDECO [Suspect]
     Active Substance: IVACAFTOR
     Indication: Cystic fibrosis
     Dosage: 1 TAB IN PM (75 MG IVA)
     Route: 048
     Dates: start: 20240702
  3. SULFAMETHOXAZOLE\TRIMETHOPRIM [Concomitant]
     Active Substance: SULFAMETHOXAZOLE\TRIMETHOPRIM
     Dates: start: 20241212, end: 20241226

REACTIONS (2)
  - Hypoacusis [Recovered/Resolved]
  - Nasopharyngitis [Unknown]

NARRATIVE: CASE EVENT DATE: 20240101
